FAERS Safety Report 5794901-X (Version None)
Quarter: 2008Q2

REPORT INFORMATION
  Report Type: 
  Country: None (occurrence: None)
  Receive Date: 20080630
  Receipt Date: 20080622
  Transmission Date: 20081010
  Serious: Yes (Hospitalization)
  Sender: FDA-Public Use
  Company Number: DE-ABBOTT-08P-062-0459101-00

PATIENT
  Sex: Female

DRUGS (2)
  1. CLARITHROMYCIN [Suspect]
     Indication: DRUG USE FOR UNKNOWN INDICATION
     Route: 048
     Dates: start: 20080601, end: 20080601
  2. LORMETAZEPAM [Suspect]
     Indication: SUICIDE ATTEMPT
     Dosage: 5X1 MG ONCE
     Route: 048
     Dates: start: 20080601, end: 20080601

REACTIONS (1)
  - SUICIDE ATTEMPT [None]
